FAERS Safety Report 5713058-4 (Version None)
Quarter: 2008Q2

REPORT INFORMATION
  Report Type: 
  Country: None (occurrence: None)
  Receive Date: 20080422
  Receipt Date: 20080331
  Transmission Date: 20081010
  Serious: Yes (Disabling, Other)
  Sender: FDA-Public Use
  Company Number: US-GENENTECH-257608

PATIENT
  Sex: Female
  Weight: 51 kg

DRUGS (5)
  1. APOMAB (PRO95780) [Suspect]
     Indication: NON-SMALL CELL LUNG CANCER
     Dosage: 765 MG, UNK
     Route: 042
     Dates: start: 20080214
  2. BEVACIZUMAB [Suspect]
     Indication: NON-SMALL CELL LUNG CANCER
     Dosage: 765 MG, UNK
     Route: 042
     Dates: start: 20080214
  3. PACLITAXEL [Suspect]
     Indication: NON-SMALL CELL LUNG CANCER
     Dosage: 280 UNK, UNK
     Route: 042
     Dates: start: 20080214
  4. CARBOPLATIN [Suspect]
     Indication: NON-SMALL CELL LUNG CANCER
     Dosage: 597 MG, UNK
     Route: 042
     Dates: start: 20080214
  5. OLANZAPINE [Concomitant]
     Indication: DRUG USE FOR UNKNOWN INDICATION
     Dates: start: 20081203

REACTIONS (3)
  - COGNITIVE DISORDER [None]
  - CONVULSION [None]
  - MOOD SWINGS [None]
